FAERS Safety Report 4681958-2 (Version None)
Quarter: 2005Q2

REPORT INFORMATION
  Report Type: 
  Country: None (occurrence: None)
  Receive Date: 20050602
  Receipt Date: 20050520
  Transmission Date: 20051028
  Serious: Yes (Other)
  Sender: FDA-Public Use
  Company Number: 26690

PATIENT
  Age: 78 Year
  Sex: Male

DRUGS (1)
  1. FLECAINE (ORAL) (FLECAINE ACETATE) [Suspect]
     Indication: ARRHYTHMIA
     Dosage: 100 MG (50 MG, 2 IN 1 DAY (S)) ORAL
     Route: 048
     Dates: start: 20020101

REACTIONS (1)
  - RETINAL DETACHMENT [None]
